FAERS Safety Report 22194921 (Version 3)
Quarter: 2023Q2

REPORT INFORMATION
  Report Type: Spontaneous
  Country: JP (occurrence: JP)
  Receive Date: 20230411
  Receipt Date: 20230525
  Transmission Date: 20230722
  Serious: Yes (Other)
  Sender: FDA-Public Use
  Company Number: JP-GSKCHJ-JPCH2023JPN014995AA

PATIENT

DRUGS (15)
  1. NICOTINELL [Suspect]
     Active Substance: NICOTINE
     Indication: Smoking cessation therapy
     Dosage: UNK
     Route: 050
     Dates: start: 20221130
  2. NICOTINELL [Suspect]
     Active Substance: NICOTINE
     Dosage: UNK
     Route: 050
  3. NICOTINELL [Suspect]
     Active Substance: NICOTINE
     Dosage: UNK
     Route: 050
     Dates: end: 20230110
  4. AMARYL TABLETS [Concomitant]
     Indication: Diabetes mellitus
     Dosage: 0.5 MG, QD
     Route: 048
     Dates: start: 20220615
  5. METFORMIN HYDROCHLORIDE\VILDAGLIPTIN [Concomitant]
     Active Substance: METFORMIN HYDROCHLORIDE\VILDAGLIPTIN
     Indication: Diabetes mellitus
     Dosage: 1 DF, BID
     Route: 048
     Dates: start: 20200905
  6. SEIBULE OD [Concomitant]
     Indication: Diabetes mellitus
     Dosage: 50 MG, TID
     Route: 048
     Dates: start: 20220323
  7. FORXIGA TABLET [Concomitant]
     Indication: Diabetes mellitus
     Dosage: 10 MG, QD
     Route: 048
     Dates: start: 20191108
  8. METGLUCO TABLETS [Concomitant]
     Indication: Diabetes mellitus
     Dosage: 500 MG, QD
     Route: 048
  9. METGLUCO TABLETS [Concomitant]
     Dosage: 500 MG, BID
     Route: 048
     Dates: start: 20230308
  10. NIFEDIPINE CR TABLETS [Concomitant]
     Indication: Hypertension
     Dosage: 20 MG, BID
     Route: 048
     Dates: start: 20190409
  11. CARBOCYSTEINE [Concomitant]
     Active Substance: CARBOCYSTEINE
     Indication: Chronic sinusitis
     Dosage: 500 MG, TID
     Route: 048
     Dates: start: 20220414
  12. CLARITHROMYCIN [Concomitant]
     Active Substance: CLARITHROMYCIN
     Indication: Chronic sinusitis
     Dosage: 200 MG, QD
     Route: 048
     Dates: start: 20190708
  13. BIOFERMIN-R TABLETS (JAPAN) [Concomitant]
     Indication: Gastrointestinal disorder
     Dosage: 1 DF, QD
     Route: 048
     Dates: start: 20190708
  14. MIYA-BM [Concomitant]
     Active Substance: CLOSTRIDIUM BUTYRICUM SPORES STRAIN M-55
     Indication: Gastrointestinal disorder
     Dosage: 1 DF, TID
     Dates: start: 20221109
  15. MEXILETINE HYDROCHLORIDE [Concomitant]
     Active Substance: MEXILETINE HYDROCHLORIDE
     Indication: Hypoaesthesia
     Dosage: 100 G, TID
     Route: 048
     Dates: start: 20220615

REACTIONS (2)
  - Diabetes mellitus [Not Recovered/Not Resolved]
  - Hyperphagia [Unknown]

NARRATIVE: CASE EVENT DATE: 20230208
